FAERS Safety Report 8287713-9 (Version None)
Quarter: 2012Q2

REPORT INFORMATION
  Report Type: 
  Country: None (occurrence: None)
  Receive Date: 20120411
  Receipt Date: 20120411
  Transmission Date: 20120825
  Serious: No
  Sender: FDA-Public Use
  Company Number: None

PATIENT

DRUGS (1)
  1. ACTOS [Suspect]

REACTIONS (9)
  - SWELLING [None]
  - ERYTHEMA [None]
  - MUSCLE DISORDER [None]
  - BACK PAIN [None]
  - PAIN IN EXTREMITY [None]
  - ABDOMINAL DISTENSION [None]
  - GLUCOSE TOLERANCE IMPAIRED [None]
  - BACK DISORDER [None]
  - NEPHROLITHIASIS [None]
